FAERS Safety Report 13463259 (Version 1)
Quarter: 2017Q2

REPORT INFORMATION
  Report Type: Spontaneous
  Country: JP (occurrence: JP)
  Receive Date: 20170420
  Receipt Date: 20170420
  Transmission Date: 20170830
  Serious: Yes (Death, Life-Threatening, Hospitalization, Other)
  Sender: FDA-Public Use
  Company Number: JP-ELI_LILLY_AND_COMPANY-JP201704006020

PATIENT
  Age: 62 Year
  Sex: Female
  Weight: 52.2 kg

DRUGS (2)
  1. GEMZAR [Suspect]
     Active Substance: GEMCITABINE HYDROCHLORIDE
     Indication: PANCREATIC CARCINOMA STAGE IV
     Dosage: 1500 MG, OTHER
     Route: 042
     Dates: start: 20160519, end: 20160527
  2. ABRAXANE [Suspect]
     Active Substance: PACLITAXEL
     Indication: PANCREATIC CARCINOMA STAGE IV
     Dosage: 190 MG, OTHER
     Route: 042
     Dates: start: 20160519, end: 20160527

REACTIONS (2)
  - Interstitial lung disease [Fatal]
  - Anaemia [Unknown]

NARRATIVE: CASE EVENT DATE: 20160527
